FAERS Safety Report 8557241-1 (Version None)
Quarter: 2012Q3

REPORT INFORMATION
  Report Type: 
  Country: None (occurrence: None)
  Receive Date: 20120801
  Receipt Date: 20120727
  Transmission Date: 20120928
  Serious: Yes (Other)
  Sender: FDA-Public Use
  Company Number: PHEH2012US009090

PATIENT
  Sex: Female
  Weight: 67.12 kg

DRUGS (6)
  1. MIDOL [Concomitant]
     Indication: HEADACHE
  2. NABUMETONE [Concomitant]
  3. GABAPENTIN [Concomitant]
  4. GILENYA [Suspect]
     Indication: MULTIPLE SCLEROSIS
     Dosage: 0.5 MG, DAILY
     Route: 048
     Dates: start: 20120320
  5. HYDROXYZINE [Concomitant]
  6. ZESTRIL [Concomitant]

REACTIONS (4)
  - OROPHARYNGEAL PAIN [None]
  - HEADACHE [None]
  - VISION BLURRED [None]
  - SCOTOMA [None]
